FAERS Safety Report 6146932-8 (Version None)
Quarter: 2009Q2

REPORT INFORMATION
  Report Type: 
  Country: None (occurrence: None)
  Receive Date: 20090407
  Receipt Date: 20090401
  Transmission Date: 20091009
  Serious: No
  Sender: FDA-Public Use
  Company Number: US-B.I. PHARMACEUTICALS,INC./RIDGEFIELD-2009-BP-03365BP

PATIENT
  Sex: Male

DRUGS (7)
  1. ATROVENT HFA [Suspect]
     Indication: DYSPNOEA
     Dosage: 34MCG
  2. ALBUTEROL SULFATE [Suspect]
     Indication: CHRONIC OBSTRUCTIVE PULMONARY DISEASE
  3. METOPROLOL [Concomitant]
  4. LISINOPRIL [Concomitant]
  5. MIRTAZAPINE [Concomitant]
  6. POTASSIUM CHLORIDE [Concomitant]
  7. FUROSEMID [Concomitant]

REACTIONS (2)
  - DRUG INEFFECTIVE [None]
  - DYSPNOEA [None]
